FAERS Safety Report 22289209 (Version 1)
Quarter: 2023Q2

REPORT INFORMATION
  Report Type: Spontaneous
  Country: US (occurrence: None)
  Receive Date: 20230504
  Receipt Date: 20230504
  Transmission Date: 20230722
  Serious: Yes (unspecified)
  Sender: FDA-Public Use
  Company Number: None

PATIENT
  Age: 62 Year
  Sex: Female
  Weight: 78.3 kg

DRUGS (2)
  1. HYDROCHLOROTHIAZIDE\LISINOPRIL [Suspect]
     Active Substance: HYDROCHLOROTHIAZIDE\LISINOPRIL
     Indication: Hypertension
     Dosage: 1 TABLET DAILY ORAL
     Route: 048
     Dates: start: 20180313, end: 20230501
  2. Vitamin C [Concomitant]

REACTIONS (3)
  - Drug hypersensitivity [None]
  - Lip swelling [None]
  - Feeling abnormal [None]

NARRATIVE: CASE EVENT DATE: 20230501
